FAERS Safety Report 9954153 (Version 1)
Quarter: 2014Q1

REPORT INFORMATION
  Report Type: Report from Study
  Country: US (occurrence: US)
  Receive Date: 20140304
  Receipt Date: 20140304
  Transmission Date: 20141002
  Serious: No
  Sender: FDA-Public Use
  Company Number: US-ABBVIE-13P-163-1078666-00

PATIENT
  Age: 60 Year
  Sex: Male

DRUGS (4)
  1. HUMIRA [Suspect]
     Indication: RHEUMATOID ARTHRITIS
     Dates: start: 2008
  2. HCTZ [Concomitant]
     Indication: HYPERTENSION
     Dosage: DAILY
  3. METOPROLOL [Concomitant]
     Indication: MIGRAINE PROPHYLAXIS
  4. EYE DROPS [Concomitant]
     Indication: GLAUCOMA

REACTIONS (2)
  - Injection site pain [Recovering/Resolving]
  - Nasopharyngitis [Recovering/Resolving]
